FAERS Safety Report 10513189 (Version 2)
Quarter: 2014Q4

REPORT INFORMATION
  Report Type: Spontaneous
  Country: CN (occurrence: CN)
  Receive Date: 20141013
  Receipt Date: 20141013
  Transmission Date: 20150528
  Serious: Yes (Other)
  Sender: FDA-Public Use
  Company Number: CN-BAYER-2014-126703

PATIENT

DRUGS (2)
  1. GLICLAZIDE [Concomitant]
     Active Substance: GLICLAZIDE
     Dosage: DAILY DOSE 4 DF
  2. GLUCOBAY [Suspect]
     Active Substance: ACARBOSE
     Dosage: DAILY DOSE 6 DF

REACTIONS (2)
  - Blood glucose increased [None]
  - Diabetes mellitus inadequate control [None]
